FAERS Safety Report 6247792-7 (Version None)
Quarter: 2009Q2

REPORT INFORMATION
  Report Type: 
  Country: None (occurrence: None)
  Receive Date: 20090626
  Receipt Date: 20090618
  Transmission Date: 20091009
  Serious: Yes (Hospitalization)
  Sender: FDA-Public Use
  Company Number: GR-BAYER-200918256GPV

PATIENT
  Age: 72 Year
  Sex: Male

DRUGS (1)
  1. VIVANZA [Suspect]
     Indication: DRUG USE FOR UNKNOWN INDICATION
     Dosage: TOTAL DAILY DOSE: 40 MG
     Route: 048

REACTIONS (1)
  - GENERALISED OEDEMA [None]
